FAERS Safety Report 19969727 (Version 5)
Quarter: 2022Q1

REPORT INFORMATION
  Report Type: Spontaneous
  Country: IT (occurrence: IT)
  Receive Date: 20211019
  Receipt Date: 20220127
  Transmission Date: 20220424
  Serious: Yes (Hospitalization, Other)
  Sender: FDA-Public Use
  Company Number: IT-009507513-2110ITA002312

PATIENT
  Age: 77 Year
  Sex: Male

DRUGS (6)
  1. AXITINIB [Suspect]
     Active Substance: AXITINIB
     Indication: Renal cancer metastatic
     Dosage: UNK
     Route: 048
  2. AXITINIB [Suspect]
     Active Substance: AXITINIB
     Indication: Metastases to lung
     Dosage: 5 MG, 2X/DAY (MORNING AND EVENING)
     Route: 048
     Dates: start: 20210506, end: 20210711
  3. AXITINIB [Suspect]
     Active Substance: AXITINIB
     Dosage: 3 MG, 2X/DAY (BID )
     Route: 048
     Dates: start: 20210722, end: 20210812
  4. PEMBROLIZUMAB [Suspect]
     Active Substance: PEMBROLIZUMAB
     Indication: Renal cancer metastatic
     Dosage: UNK
  5. PEMBROLIZUMAB [Suspect]
     Active Substance: PEMBROLIZUMAB
     Indication: Metastases to lung
     Dosage: 200 MG, EVERY 3 WEEKS
     Dates: start: 20210506, end: 20210812
  6. SODIUM CHLORIDE [Concomitant]
     Active Substance: SODIUM CHLORIDE
     Dosage: 250 ML, EVERY 3 WEEKS (250 MILLILITER, Q3W)
     Dates: start: 20210506

REACTIONS (13)
  - Haemorrhagic cerebral infarction [Recovered/Resolved]
  - Gallbladder rupture [Not Recovered/Not Resolved]
  - Superinfection [Not Recovered/Not Resolved]
  - Vomiting [Unknown]
  - Nausea [Unknown]
  - Candida infection [Unknown]
  - Cholecystitis [Unknown]
  - Anaemia [Unknown]
  - Escherichia infection [Unknown]
  - Cholelithiasis [Unknown]
  - Haemorrhage [Unknown]
  - Pain [Unknown]
  - Staphylococcal infection [Unknown]

NARRATIVE: CASE EVENT DATE: 20210101
